FAERS Safety Report 24450471 (Version 1)
Quarter: 2024Q4

REPORT INFORMATION
  Report Type: Spontaneous
  Country: US (occurrence: US)
  Receive Date: 20241017
  Receipt Date: 20241017
  Transmission Date: 20250115
  Serious: No
  Sender: INCYTE
  Company Number: US-INCYTE CORPORATION-2024IN010703

PATIENT

DRUGS (2)
  1. JAKAFI [Suspect]
     Active Substance: RUXOLITINIB
     Indication: Bronchitis chronic
     Dosage: 10 MILLIGRAM, BID
     Route: 048
     Dates: start: 202204
  2. JAKAFI [Suspect]
     Active Substance: RUXOLITINIB
     Indication: Myeloid leukaemia

REACTIONS (1)
  - Off label use [Unknown]

NARRATIVE: CASE EVENT DATE: 20220401
